FAERS Safety Report 5292545-X (Version None)
Quarter: 2007Q2

REPORT INFORMATION
  Report Type: 
  Country: None (occurrence: None)
  Receive Date: 20070410
  Receipt Date: 20070330
  Transmission Date: 20071010
  Serious: Yes (Other)
  Sender: FDA-Public Use
  Company Number: US-PFIZER INC-2007026801

PATIENT
  Age: 75 Year
  Sex: Female
  Weight: 68 kg

DRUGS (4)
  1. CHANTIX [Suspect]
     Indication: EX-SMOKER
  2. LOVASTATIN [Concomitant]
  3. LISINOPRIL [Concomitant]
  4. METFORMIN [Concomitant]

REACTIONS (1)
  - BLOOD GLUCOSE INCREASED [None]
